FAERS Safety Report 5464493-3 (Version None)
Quarter: 2007Q3

REPORT INFORMATION
  Report Type: 
  Country: None (occurrence: None)
  Receive Date: 20070921
  Receipt Date: 20070911
  Transmission Date: 20080115
  Serious: Yes (Disabling)
  Sender: FDA-Public Use
  Company Number: DE-SANOFI-SYNTHELABO-A04200701221

PATIENT
  Age: 32 Year
  Sex: Female
  Weight: 48 kg

DRUGS (1)
  1. ZOLPIDEM TARTRATE [Suspect]
     Indication: DRUG USE FOR UNKNOWN INDICATION
     Dosage: 5 MG
     Route: 048
     Dates: start: 20070526, end: 20070526

REACTIONS (4)
  - ERYTHEMA [None]
  - PARAESTHESIA [None]
  - PHOTOSENSITIVITY REACTION [None]
  - SKIN BURNING SENSATION [None]
